FAERS Safety Report 4934248-4 (Version None)
Quarter: 2006Q1

REPORT INFORMATION
  Report Type: 
  Country: None (occurrence: None)
  Receive Date: 20060303
  Receipt Date: 20060220
  Transmission Date: 20060701
  Serious: Yes (Other)
  Sender: FDA-Public Use
  Company Number: ST-2005-008314

PATIENT
  Age: 58 Year
  Sex: Male
  Weight: 62.6 kg

DRUGS (19)
  1. OLMESARTAN [Suspect]
     Indication: DIABETES MELLITUS NON-INSULIN-DEPENDENT
     Dosage: 10 MG QD PO
     Route: 048
     Dates: start: 20040701, end: 20040804
  2. OLMESARTAN [Suspect]
     Indication: DIABETIC NEPHROPATHY
     Dosage: 10 MG QD PO
     Route: 048
     Dates: start: 20040701, end: 20040804
  3. OLMESARTAN [Suspect]
     Indication: DIABETES MELLITUS NON-INSULIN-DEPENDENT
     Dosage: 20 MG QD PO
     Route: 048
     Dates: start: 20040805, end: 20040901
  4. OLMESARTAN [Suspect]
     Indication: DIABETIC NEPHROPATHY
     Dosage: 20 MG QD PO
     Route: 048
     Dates: start: 20040805, end: 20040901
  5. OLMESARTAN [Suspect]
     Indication: DIABETES MELLITUS NON-INSULIN-DEPENDENT
     Dosage: 40 MG QD PO
     Route: 048
     Dates: start: 20040902, end: 20060112
  6. OLMESARTAN [Suspect]
     Indication: DIABETIC NEPHROPATHY
     Dosage: 40 MG QD PO
     Route: 048
     Dates: start: 20040902, end: 20060112
  7. PLACEBO [Suspect]
     Dosage: PLACEBO
     Dates: start: 20040520, end: 20040630
  8. PLACEBO [Suspect]
     Dosage: 10 MG QD PO
     Route: 048
     Dates: start: 20040701, end: 20040804
  9. PLACEBO [Suspect]
     Dosage: 20 MG QD PO
     Route: 048
     Dates: start: 20040805, end: 20040901
  10. PLACEBO [Suspect]
     Dosage: 40 MG QD PO
     Route: 048
     Dates: start: 20040902, end: 20060112
  11. NORVASC [Suspect]
     Indication: HYPERTENSION
     Dosage: 2.5 MG QD PO
     Route: 048
     Dates: start: 20041125, end: 20041215
  12. NORVASC [Suspect]
     Indication: HYPERTENSION
     Dosage: 2.5 MG QD PO
     Route: 048
     Dates: start: 20041216, end: 20060112
  13. NOVOLIN 30R [Concomitant]
  14. LASIX [Concomitant]
  15. PERSANTIN [Concomitant]
  16. ZYLORIC ^GLAXO WELLCOME^ [Concomitant]
  17. CARNACULIN [Concomitant]
  18. DICLOD [Concomitant]
  19. CYANOCOBALAMIN [Concomitant]

REACTIONS (5)
  - CEREBRAL INFARCTION [None]
  - CEREBROVASCULAR ACCIDENT [None]
  - ORTHOSTATIC HYPOTENSION [None]
  - REFUSAL OF TREATMENT BY PATIENT [None]
  - TRANSIENT ISCHAEMIC ATTACK [None]
